FAERS Safety Report 7318900-1 (Version None)
Quarter: 2011Q1

REPORT INFORMATION
  Report Type: 
  Country: None (occurrence: None)
  Receive Date: 20110228
  Receipt Date: 20110215
  Transmission Date: 20110831
  Serious: Yes (Hospitalization)
  Sender: FDA-Public Use
  Company Number: FR-ELI_LILLY_AND_COMPANY-FR201101003554

PATIENT
  Age: 57 Year
  Sex: Female

DRUGS (7)
  1. CYMBALTA [Suspect]
     Indication: DEPRESSION
     Dosage: 60 MG, DAILY (1/D)
     Route: 048
  2. ALCOHOL [Concomitant]
  3. TRIMEPRAZINE TARTRATE [Concomitant]
     Dosage: 10 GTT, DAILY (1/D)
     Route: 048
  4. DAFALGAN [Concomitant]
     Route: 048
  5. ABILIFY [Concomitant]
     Dosage: 5 MG, UNK
     Route: 048
  6. IMOVANE [Concomitant]
     Route: 048
  7. XANAX [Concomitant]
     Dosage: 0.5 MG, 2/D
     Route: 048

REACTIONS (7)
  - GAMMA-GLUTAMYLTRANSFERASE INCREASED [None]
  - TRANSAMINASES INCREASED [None]
  - CONVULSION [None]
  - CHOLESTASIS [None]
  - HEPATIC STEATOSIS [None]
  - HYPONATRAEMIA [None]
  - RHABDOMYOLYSIS [None]
